FAERS Safety Report 15331776 (Version 2)
Quarter: 2018Q4

REPORT INFORMATION
  Report Type: Report from Study
  Country: US (occurrence: US)
  Receive Date: 20180829
  Receipt Date: 20181016
  Transmission Date: 20190204
  Serious: Yes (Hospitalization, Other)
  Sender: FDA-Public Use
  Company Number: US-SA-2016SA110500

PATIENT
  Age: 39 Year
  Sex: Female

DRUGS (9)
  1. GABAPENTIN. [Concomitant]
     Active Substance: GABAPENTIN
     Indication: NEURALGIA
     Dosage: 6 ML,BID
     Route: 065
     Dates: start: 2011
  2. BOTOX [Concomitant]
     Active Substance: ONABOTULINUMTOXINA
     Indication: MIGRAINE
     Dosage: EVERY 3 MONTHS
     Route: 065
  3. DOCUSATE SODIUM. [Concomitant]
     Active Substance: DOCUSATE SODIUM
     Dosage: 100 MG,HS
     Route: 065
  4. BACLOFEN. [Concomitant]
     Active Substance: BACLOFEN
     Indication: NEURALGIA
     Dosage: 7 MG,BID
     Route: 065
     Dates: start: 2012
  5. ALEMTUZUMAB [Suspect]
     Active Substance: ALEMTUZUMAB
     Dosage: 12 MG,QD
     Route: 041
     Dates: start: 20160509, end: 20160513
  6. ACICLOVIR [Concomitant]
     Active Substance: ACYCLOVIR
     Indication: PROPHYLAXIS
     Dosage: 10 ML,BID
     Route: 065
     Dates: start: 201605
  7. LAMOTRIGINE. [Concomitant]
     Active Substance: LAMOTRIGINE
     Indication: EPILEPSY
     Dosage: 125 MG,BID
     Route: 065
     Dates: start: 2013
  8. LAMOTRIGINE. [Concomitant]
     Active Substance: LAMOTRIGINE
     Indication: AFFECTIVE DISORDER
  9. CLONAZEPAM. [Concomitant]
     Active Substance: CLONAZEPAM
     Indication: ANXIETY
     Dosage: UNK UNK,TID
     Route: 065

REACTIONS (16)
  - Lymphoma [Not Recovered/Not Resolved]
  - Rash [Recovered/Resolved]
  - Increased tendency to bruise [Unknown]
  - Eczema [Not Recovered/Not Resolved]
  - Gingival pain [Unknown]
  - Laboratory test abnormal [Unknown]
  - Dermatitis allergic [Not Recovered/Not Resolved]
  - Balance disorder [Not Recovered/Not Resolved]
  - Rash erythematous [Unknown]
  - Menorrhagia [Unknown]
  - Asthenia [Not Recovered/Not Resolved]
  - Neoplasm [Unknown]
  - Pyrexia [Unknown]
  - Contusion [Unknown]
  - Arthralgia [Not Recovered/Not Resolved]
  - Viral infection [Unknown]

NARRATIVE: CASE EVENT DATE: 2016
